FAERS Safety Report 24010840 (Version 1)
Quarter: 2024Q2

REPORT INFORMATION
  Report Type: Spontaneous
  Country: US (occurrence: None)
  Receive Date: 20240624
  Receipt Date: 20240624
  Transmission Date: 20240716
  Serious: Yes (Other)
  Sender: FDA-Public Use
  Company Number: None

PATIENT
  Age: 38 Year
  Sex: Female

DRUGS (2)
  1. MONISTAT 1 COMBINATION PACK [Suspect]
     Active Substance: MICONAZOLE NITRATE
     Indication: Fungal infection
     Dates: start: 20240422, end: 20240423
  2. CYMBALTA [Concomitant]
     Active Substance: DULOXETINE HYDROCHLORIDE

REACTIONS (5)
  - Vulvovaginal burning sensation [None]
  - Vulvovaginal erythema [None]
  - Pain [None]
  - Dysuria [None]
  - Vulvovaginal swelling [None]

NARRATIVE: CASE EVENT DATE: 20240422
